FAERS Safety Report 7668330-8 (Version None)
Quarter: 2011Q3

REPORT INFORMATION
  Report Type: 
  Country: None (occurrence: None)
  Receive Date: 20110808
  Receipt Date: 20110729
  Transmission Date: 20111222
  Serious: Yes (Other)
  Sender: FDA-Public Use
  Company Number: US-US-EMD SERONO, INC.-7074192

PATIENT
  Sex: Female

DRUGS (2)
  1. PROZAC [Concomitant]
  2. REBIF [Suspect]
     Indication: PRODUCT USED FOR UNKNOWN INDICATION
     Route: 058
     Dates: start: 20100714

REACTIONS (3)
  - LOSS OF CONSCIOUSNESS [None]
  - INJECTION SITE ERYTHEMA [None]
  - DYSSTASIA [None]
